FAERS Safety Report 18648771 (Version 1)
Quarter: 2020Q4

REPORT INFORMATION
  Report Type: Spontaneous
  Country: US (occurrence: US)
  Receive Date: 20201221
  Receipt Date: 20201221
  Transmission Date: 20210114
  Serious: Yes (Hospitalization)
  Sender: FDA-Public Use
  Company Number: None

PATIENT
  Age: 47 Year
  Sex: Male
  Weight: 65 kg

DRUGS (2)
  1. TROPICAMIDE (TROPICAMIDE 1% SOLN, OPH) [Suspect]
     Active Substance: TROPICAMIDE
     Dates: start: 20201030, end: 20201030
  2. PHENYLEPHRINE (PHENYLEPHRINE HCL 2.5% SOLN, OPH) [Suspect]
     Active Substance: PHENYLEPHRINE HYDROCHLORIDE
     Dates: start: 20201030, end: 20201030

REACTIONS (5)
  - Seizure [None]
  - Transient ischaemic attack [None]
  - Hypokalaemia [None]
  - Cerebral infarction [None]
  - Nausea [None]

NARRATIVE: CASE EVENT DATE: 20201030
